FAERS Safety Report 11993117 (Version 1)
Quarter: 2016Q1

REPORT INFORMATION
  Report Type: Spontaneous
  Country: GB (occurrence: GB)
  Receive Date: 20160203
  Receipt Date: 20160203
  Transmission Date: 20160526
  Serious: Yes (Other)
  Sender: FDA-Public Use
  Company Number: GB-PAR PHARMACEUTICAL COMPANIES-2016SCPR015139

PATIENT

DRUGS (6)
  1. CARBIDOPA. [Concomitant]
     Active Substance: CARBIDOPA
     Indication: PARKINSON^S DISEASE
     Dosage: UNK, UNKNOWN
     Route: 065
  2. PERGOLIDE MESYLATE. [Suspect]
     Active Substance: PERGOLIDE MESYLATE
     Indication: PARKINSON^S DISEASE
     Dosage: 2 MG, / DAY
     Route: 065
  3. PILOCARPINE. [Concomitant]
     Active Substance: PILOCARPINE
     Indication: OPEN ANGLE GLAUCOMA
     Dosage: UNK, UNKNOWN
     Route: 065
  4. LEVODOPA [Concomitant]
     Active Substance: LEVODOPA
     Indication: PARKINSON^S DISEASE
     Dosage: UNK, UNKNOWN
     Route: 065
  5. BENSERAZIDE [Concomitant]
     Active Substance: BENSERAZIDE
     Indication: PARKINSON^S DISEASE
     Dosage: UNK, UNKNOWN
     Route: 048
  6. TIMOLOL. [Concomitant]
     Active Substance: TIMOLOL
     Indication: OPEN ANGLE GLAUCOMA
     Dosage: UNK, UNKNOWN
     Route: 065

REACTIONS (2)
  - Hypotony of eye [Recovered/Resolved]
  - Choroidal effusion [Recovered/Resolved]
